FAERS Safety Report 24544769 (Version 1)
Quarter: 2024Q4

REPORT INFORMATION
  Report Type: Spontaneous
  Country: US (occurrence: None)
  Receive Date: 20241023
  Receipt Date: 20241023
  Transmission Date: 20250114
  Serious: No
  Sender: Public
  Company Number: None

PATIENT
  Sex: Female

DRUGS (3)
  1. TADALAFIL [Suspect]
     Active Substance: TADALAFIL
     Indication: Pulmonary hypertension
     Dosage: FREQUENCY : DAILY;?
     Route: 048
     Dates: start: 202401
  2. WINREVAIR [Concomitant]
     Active Substance: SOTATERCEPT-CSRK
  3. WINREVAIR SDV (2/KIT) [Concomitant]

REACTIONS (1)
  - Infusion site infection [None]
